FAERS Safety Report 20728285 (Version 1)
Quarter: 2022Q2

REPORT INFORMATION
  Report Type: Spontaneous
  Country: US (occurrence: US)
  Receive Date: 20220420
  Receipt Date: 20220420
  Transmission Date: 20220721
  Serious: Yes (Other)
  Sender: FDA-Public Use
  Company Number: US-ABBVIE-22K-163-4362096-00

PATIENT
  Sex: Female
  Weight: 44.492 kg

DRUGS (2)
  1. CREON [Suspect]
     Active Substance: PANCRELIPASE AMYLASE\PANCRELIPASE LIPASE\PANCRELIPASE PROTEASE
     Indication: Pancreatic failure
     Dosage: WITH MEALS
     Route: 048
     Dates: end: 2022
  2. ARSENIC [Suspect]
     Active Substance: ARSENIC
     Indication: Product used for unknown indication
     Route: 065

REACTIONS (7)
  - Metal poisoning [Unknown]
  - Medication error [Unknown]
  - Faecal elastase concentration decreased [Unknown]
  - Illness [Unknown]
  - Infrequent bowel movements [Unknown]
  - Obstruction [Unknown]
  - Drug ineffective [Unknown]

NARRATIVE: CASE EVENT DATE: 20220301
